FAERS Safety Report 16826270 (Version 1)
Quarter: 2019Q3

REPORT INFORMATION
  Report Type: Spontaneous
  Country: US (occurrence: US)
  Receive Date: 20190919
  Receipt Date: 20190919
  Transmission Date: 20191005
  Serious: Yes (Hospitalization, Disabling)
  Sender: FDA-Public Use
  Company Number: US-ROCHE-2343543

PATIENT
  Sex: Female

DRUGS (1)
  1. XOLAIR [Suspect]
     Active Substance: OMALIZUMAB
     Indication: PRODUCT USED FOR UNKNOWN INDICATION
     Dosage: 150 MG IN 1ML?XOLAIR PFS
     Route: 065

REACTIONS (4)
  - Asthma [Unknown]
  - Therapeutic product effect decreased [Unknown]
  - Immobile [Recovering/Resolving]
  - Product quality issue [Unknown]
